FAERS Safety Report 25271152 (Version 1)
Quarter: 2025Q2

REPORT INFORMATION
  Report Type: Spontaneous
  Country: GR (occurrence: None)
  Receive Date: 20250506
  Receipt Date: 20250506
  Transmission Date: 20250717
  Serious: Yes (Other)
  Sender: NATCO PHARMA
  Company Number: GR-NATCOUSA-2025-NATCOUSA-000293

PATIENT
  Age: 47 Year
  Sex: Female

DRUGS (1)
  1. MOXIFLOXACIN [Suspect]
     Active Substance: MOXIFLOXACIN
     Indication: Respiratory tract infection viral
     Dosage: 400 MG DAILY FOR 3 DAYS
     Route: 048

REACTIONS (2)
  - Iris adhesions [Unknown]
  - Iris transillumination defect [Unknown]
